FAERS Safety Report 11241112 (Version 1)
Quarter: 2015Q3

REPORT INFORMATION
  Report Type: Spontaneous
  Country: US (occurrence: US)
  Receive Date: 20150706
  Receipt Date: 20150706
  Transmission Date: 20151125
  Serious: Yes (Death, Life-Threatening, Hospitalization, Other)
  Sender: FDA-Public Use
  Company Number: US-009507513-0712USA01452

PATIENT
  Sex: Male

DRUGS (4)
  1. ZOLINZA [Suspect]
     Active Substance: VORINOSTAT
     Indication: B-CELL LYMPHOMA
     Route: 048
     Dates: start: 20071016
  2. METICORTEN [Concomitant]
     Active Substance: PREDNISONE
  3. ZOLINZA [Suspect]
     Active Substance: VORINOSTAT
     Indication: TESTIS CANCER
  4. THERAPY UNSPECIFIED [Concomitant]
     Active Substance: UNSPECIFIED INGREDIENT

REACTIONS (2)
  - Pancreatitis [Fatal]
  - Off label use [Unknown]

NARRATIVE: CASE EVENT DATE: 20071016
